FAERS Safety Report 21513274 (Version 4)
Quarter: 2023Q1

REPORT INFORMATION
  Report Type: Report from Study
  Country: US (occurrence: US)
  Receive Date: 20221027
  Receipt Date: 20230126
  Transmission Date: 20230417
  Serious: Yes (Hospitalization, Other)
  Sender: FDA-Public Use
  Company Number: US-EXELIXIS-CABO-22056519

PATIENT
  Age: 75 Year
  Sex: Female

DRUGS (3)
  1. CABOMETYX [Suspect]
     Active Substance: CABOZANTINIB S-MALATE
     Indication: Renal cancer
     Dosage: 40 MG, QD
     Route: 048
  2. CABOMETYX [Suspect]
     Active Substance: CABOZANTINIB S-MALATE
     Dosage: 40 MG, QD
     Route: 048
     Dates: start: 20220902, end: 20221017
  3. CABOMETYX [Suspect]
     Active Substance: CABOZANTINIB S-MALATE
     Dosage: 40 MG, QD
     Route: 048
     Dates: end: 20230117

REACTIONS (12)
  - Abscess limb [Recovering/Resolving]
  - Soft tissue necrosis [Recovering/Resolving]
  - COVID-19 pneumonia [Recovering/Resolving]
  - Laryngitis [Not Recovered/Not Resolved]
  - Post procedural haemorrhage [Unknown]
  - Feeling abnormal [Unknown]
  - Diarrhoea [Unknown]
  - Palmar-plantar erythrodysaesthesia syndrome [Unknown]
  - Pruritus [Recovered/Resolved]
  - Fatigue [Recovered/Resolved]
  - Blood pressure systolic increased [Recovering/Resolving]
  - Product dose omission issue [Unknown]

NARRATIVE: CASE EVENT DATE: 20221001
